FAERS Safety Report 9382413 (Version 7)
Quarter: 2014Q2

REPORT INFORMATION
  Report Type: Report from Study
  Country: US (occurrence: US)
  Receive Date: 20130703
  Receipt Date: 20140512
  Transmission Date: 20141212
  Serious: Yes (Life-Threatening, Hospitalization)
  Sender: FDA-Public Use
  Company Number: US-JNJFOC-20130700454

PATIENT
  Age: 53 Year
  Sex: Male
  Weight: 95.26 kg

DRUGS (2)
  1. USTEKINUMAB [Suspect]
     Indication: PSORIASIS
     Route: 058
     Dates: start: 20130220, end: 201302
  2. USTEKINUMAB [Suspect]
     Indication: PSORIASIS
     Route: 058
     Dates: start: 20091231

REACTIONS (14)
  - Infection [Recovered/Resolved with Sequelae]
  - Atelectasis [Recovering/Resolving]
  - Subdural haematoma [Recovered/Resolved with Sequelae]
  - Subarachnoid haemorrhage [Recovering/Resolving]
  - Intervertebral disc degeneration [Recovering/Resolving]
  - Pneumonia aspiration [Recovering/Resolving]
  - Pneumothorax [Recovering/Resolving]
  - Dysphagia [Recovering/Resolving]
  - Alcohol poisoning [Recovering/Resolving]
  - Fall [Recovering/Resolving]
  - Loss of consciousness [Recovering/Resolving]
  - Pleural effusion [Recovering/Resolving]
  - Postoperative respiratory failure [Recovering/Resolving]
  - Hypokalaemia [Recovering/Resolving]
